FAERS Safety Report 5441062-2 (Version None)
Quarter: 2007Q3

REPORT INFORMATION
  Report Type: 
  Country: None (occurrence: None)
  Receive Date: 20070831
  Receipt Date: 20070820
  Transmission Date: 20080115
  Serious: Yes (Hospitalization, Other)
  Sender: FDA-Public Use
  Company Number: US-PFIZER INC-2007044827

PATIENT
  Sex: Female
  Weight: 57.6 kg

DRUGS (1)
  1. CELEBREX [Suspect]
     Indication: ARTHRITIS

REACTIONS (6)
  - CARDIOVASCULAR DISORDER [None]
  - FEELING ABNORMAL [None]
  - INSOMNIA [None]
  - MYOCARDIAL INFARCTION [None]
  - NERVOUSNESS [None]
  - UNEVALUABLE EVENT [None]
